FAERS Safety Report 17037278 (Version 1)
Quarter: 2019Q4

REPORT INFORMATION
  Report Type: Report from Study
  Country: FR (occurrence: FR)
  Receive Date: 20191115
  Receipt Date: 20191115
  Transmission Date: 20200122
  Serious: Yes (Hospitalization)
  Sender: FDA-Public Use
  Company Number: FR-JNJFOC-20191109419

PATIENT
  Sex: Female

DRUGS (8)
  1. STELARA [Suspect]
     Active Substance: USTEKINUMAB
     Indication: PSORIASIS
     Route: 058
     Dates: start: 201608, end: 201610
  2. XAMIOL                             /06356901/ [Concomitant]
     Route: 065
     Dates: start: 20180613, end: 20180613
  3. HUMIRA [Concomitant]
     Active Substance: ADALIMUMAB
     Route: 065
     Dates: start: 201604, end: 201608
  4. IXEKIZUMAB [Concomitant]
     Active Substance: IXEKIZUMAB
     Dosage: POSOLOGY CHANGED
     Route: 058
     Dates: start: 20181010, end: 20190403
  5. SIMPONI [Concomitant]
     Active Substance: GOLIMUMAB
     Dates: start: 20170314, end: 20171220
  6. COSENTYX [Concomitant]
     Active Substance: SECUKINUMAB
     Route: 058
     Dates: start: 201611, end: 20170314
  7. IXEKIZUMAB [Concomitant]
     Active Substance: IXEKIZUMAB
     Dosage: POSOLOGY CHANGED
     Route: 058
     Dates: start: 20171220, end: 20181010
  8. EFFEXOR [Concomitant]
     Active Substance: VENLAFAXINE HYDROCHLORIDE
     Dates: start: 2012, end: 20171220

REACTIONS (1)
  - Invasive lobular breast carcinoma [Recovered/Resolved]

NARRATIVE: CASE EVENT DATE: 20190404
